FAERS Safety Report 20478828 (Version 1)
Quarter: 2022Q1

REPORT INFORMATION
  Report Type: Spontaneous
  Country: US (occurrence: US)
  Receive Date: 20220216
  Receipt Date: 20220216
  Transmission Date: 20220423
  Serious: No
  Sender: FDA-Public Use
  Company Number: US-BAUSCH-BL-2022-004191

PATIENT
  Sex: Female

DRUGS (1)
  1. FLUOROURACIL [Suspect]
     Active Substance: FLUOROURACIL
     Indication: Product used for unknown indication
     Route: 061
     Dates: end: 20220208

REACTIONS (3)
  - Illness [Unknown]
  - Ear swelling [Unknown]
  - Headache [Unknown]

NARRATIVE: CASE EVENT DATE: 20210101
